FAERS Safety Report 21678251 (Version 2)
Quarter: 2022Q4

REPORT INFORMATION
  Report Type: Spontaneous
  Country: CO (occurrence: CO)
  Receive Date: 20221203
  Receipt Date: 20221224
  Transmission Date: 20230113
  Serious: Yes (Life-Threatening, Hospitalization, Other)
  Sender: FDA-Public Use
  Company Number: CO-Accord-289326

PATIENT
  Age: 65 Year
  Sex: Female

DRUGS (1)
  1. TACROLIMUS [Suspect]
     Active Substance: TACROLIMUS
     Indication: Immunosuppressant drug therapy

REACTIONS (4)
  - Hypertrophic cardiomyopathy [Recovered/Resolved]
  - Tremor [Unknown]
  - Coronary artery stenosis [Recovered/Resolved]
  - Coronary artery disease [Recovered/Resolved]
